FAERS Safety Report 10364699 (Version 1)
Quarter: 2014Q3

REPORT INFORMATION
  Report Type: Spontaneous
  Country: US (occurrence: None)
  Receive Date: 20140801
  Receipt Date: 20140801
  Transmission Date: 20150326
  Serious: Yes (Hospitalization, Other)
  Sender: FDA-Public Use
  Company Number: UNT-2014-004558

PATIENT
  Age: 49 Year
  Sex: Female

DRUGS (3)
  1. REMODULIN [Suspect]
     Active Substance: TREPROSTINIL
     Indication: PULMONARY HYPERTENSION
     Route: 041
     Dates: start: 20140521
  2. OPSUMIT [Concomitant]
     Active Substance: MACITENTAN
  3. REVATIO (SILDENAFIL CITRATE) [Concomitant]

REACTIONS (7)
  - Pyrexia [None]
  - Device related infection [None]
  - Confusional state [None]
  - Device alarm issue [None]
  - Hot flush [None]
  - Hallucination [None]
  - Drug dose omission [None]

NARRATIVE: CASE EVENT DATE: 20140710
